FAERS Safety Report 17841970 (Version 1)
Quarter: 2020Q2

REPORT INFORMATION
  Report Type: Spontaneous
  Country: SE (occurrence: SE)
  Receive Date: 20200529
  Receipt Date: 20200529
  Transmission Date: 20200714
  Serious: Yes (Other)
  Sender: FDA-Public Use
  Company Number: NVSC2020SE148220

PATIENT
  Age: 91 Year
  Sex: Male

DRUGS (1)
  1. LEUPRORELIN SANDOZ 5 MG IMPLANTAT [Suspect]
     Active Substance: LEUPROLIDE ACETATE
     Indication: PROSTATE CANCER
     Dosage: 1 OT EVERY 6 MONTH
     Route: 058
     Dates: start: 20170821

REACTIONS (2)
  - Drug ineffective [Unknown]
  - Device malfunction [Unknown]

NARRATIVE: CASE EVENT DATE: 20200316
